FAERS Safety Report 21959763 (Version 1)
Quarter: 2023Q1

REPORT INFORMATION
  Report Type: Spontaneous
  Country: US (occurrence: US)
  Receive Date: 20230206
  Receipt Date: 20230206
  Transmission Date: 20230417
  Serious: No
  Sender: FDA-Public Use
  Company Number: US-JNJFOC-20230208231

PATIENT
  Age: 14 Year
  Sex: Female
  Weight: 68.100 kg

DRUGS (1)
  1. CONCERTA [Suspect]
     Active Substance: METHYLPHENIDATE HYDROCHLORIDE
     Indication: Attention deficit hyperactivity disorder
     Dosage: HAS BEEN ON CONCERTA FOR OVER 5 YEARS
     Route: 065

REACTIONS (1)
  - Product dose omission issue [Unknown]
